FAERS Safety Report 6150929-1 (Version None)
Quarter: 2009Q2

REPORT INFORMATION
  Report Type: 
  Country: None (occurrence: None)
  Receive Date: 20090408
  Receipt Date: 20090324
  Transmission Date: 20091009
  Serious: Yes (Other)
  Sender: FDA-Public Use
  Company Number: 2009S1005231

PATIENT
  Age: 58 Year
  Sex: Male

DRUGS (5)
  1. AMIODARONE HCL [Suspect]
     Indication: VENTRICULAR TACHYCARDIA
     Dosage: 400 MG; ORAL
     Route: 048
  2. BISOPROLOL FUMARATE [Suspect]
     Indication: VENTRICULAR TACHYCARDIA
  3. RAMIPRIL [Suspect]
     Indication: VENTRICULAR TACHYCARDIA
  4. MAGNESIUM (MAGNESIUM) [Suspect]
     Indication: VENTRICULAR TACHYCARDIA
     Dosage: INTRAVENOUS
     Route: 042
  5. MEXITIL [Suspect]
     Indication: VENTRICULAR TACHYCARDIA
     Dosage: 750 MG

REACTIONS (1)
  - DRUG INEFFECTIVE [None]
